FAERS Safety Report 11879815 (Version 6)
Quarter: 2016Q3

REPORT INFORMATION
  Report Type: Report from Study
  Country: DE (occurrence: DE)
  Receive Date: 20151230
  Receipt Date: 20160822
  Transmission Date: 20161109
  Serious: No
  Sender: FDA-Public Use
  Company Number: DE-AMGEN-DEUSP2015140137

PATIENT
  Sex: Female
  Weight: 115 kg

DRUGS (1)
  1. ETANERCEPT [Suspect]
     Active Substance: ETANERCEPT
     Indication: PSORIASIS
     Dosage: UNK
     Dates: start: 2013

REACTIONS (1)
  - Exposure via father [Recovered/Resolved]
